FAERS Safety Report 7136174-1 (Version None)
Quarter: 2010Q4

REPORT INFORMATION
  Report Type: 
  Country: None (occurrence: None)
  Receive Date: 20101206
  Receipt Date: 20101124
  Transmission Date: 20110411
  Serious: Yes (Other)
  Sender: FDA-Public Use
  Company Number: US-BIOGENIDEC-2010BI005477

PATIENT
  Age: 45 Year
  Sex: Male
  Weight: 82 kg

DRUGS (23)
  1. TYSABRI [Suspect]
     Indication: MULTIPLE SCLEROSIS
     Route: 042
     Dates: start: 20070426, end: 20100111
  2. BACLOFEN [Concomitant]
     Indication: MUSCLE SPASTICITY
  3. BACLOFEN [Concomitant]
  4. BACLOFEN [Concomitant]
  5. BACLOFEN [Concomitant]
  6. BACLOFEN [Concomitant]
  7. LEVOXYL [Concomitant]
  8. LYRICA [Concomitant]
  9. RITALIN [Concomitant]
     Indication: FATIGUE
  10. RITALIN [Concomitant]
  11. RITALIN [Concomitant]
  12. VIAGRA [Concomitant]
  13. VICODIN [Concomitant]
     Indication: PAIN
  14. SYNTHROID [Concomitant]
  15. MULTIPLE VITAMIN [Concomitant]
     Indication: SUPPLEMENTATION THERAPY
  16. IBUPROFEN [Concomitant]
  17. KEPPRA [Concomitant]
     Indication: PRODUCT USED FOR UNKNOWN INDICATION
  18. PERCOCET [Concomitant]
  19. MIRALAX [Concomitant]
     Indication: PRODUCT USED FOR UNKNOWN INDICATION
  20. MUCINEX [Concomitant]
     Indication: PRODUCT USED FOR UNKNOWN INDICATION
  21. TRAZODONE HCL [Concomitant]
     Indication: PRODUCT USED FOR UNKNOWN INDICATION
  22. CALCIUM [Concomitant]
     Indication: SUPPLEMENTATION THERAPY
  23. VITAMIN D [Concomitant]
     Indication: SUPPLEMENTATION THERAPY

REACTIONS (4)
  - DEPRESSION [None]
  - IMMUNE RECONSTITUTION SYNDROME [None]
  - PROGRESSIVE MULTIFOCAL LEUKOENCEPHALOPATHY [None]
  - URINARY TRACT INFECTION [None]
